FAERS Safety Report 12459839 (Version 2)
Quarter: 2016Q2

REPORT INFORMATION
  Report Type: Spontaneous
  Country: FR (occurrence: FR)
  Receive Date: 20160613
  Receipt Date: 20160617
  Transmission Date: 20160815
  Serious: Yes (Hospitalization)
  Sender: FDA-Public Use
  Company Number: FR-PFIZER INC-2016293827

PATIENT
  Age: 92 Year
  Sex: Female

DRUGS (1)
  1. CORDARONE [Suspect]
     Active Substance: AMIODARONE HYDROCHLORIDE
     Indication: SUPRAVENTRICULAR EXTRASYSTOLES
     Dosage: UNK (1/2 TABLET), DAILY (5 DAYS OUT OF 7)
     Route: 048
     Dates: start: 201412, end: 201508

REACTIONS (3)
  - Interstitial lung disease [Unknown]
  - Acute pulmonary oedema [Unknown]
  - Left ventricular failure [Recovering/Resolving]

NARRATIVE: CASE EVENT DATE: 201508
